FAERS Safety Report 4696468-6 (Version None)
Quarter: 2005Q2

REPORT INFORMATION
  Report Type: 
  Country: None (occurrence: None)
  Receive Date: 20050621
  Receipt Date: 20050314
  Transmission Date: 20051028
  Serious: Yes (Hospitalization)
  Sender: FDA-Public Use
  Company Number: US-MERCK-0503USA02871

PATIENT
  Age: 45 Year
  Sex: Male
  Weight: 84 kg

DRUGS (12)
  1. VIOXX [Suspect]
     Indication: ARTHRITIS
     Route: 048
     Dates: start: 20040101, end: 20040101
  2. GLUCOTROL [Concomitant]
     Indication: DIABETES MELLITUS
     Route: 065
  3. PLAVIX [Concomitant]
     Indication: HYPERTENSION
     Route: 065
     Dates: start: 19950101
  4. PREVACID [Concomitant]
     Indication: DYSPEPSIA
     Route: 065
  5. ZOLOFT [Concomitant]
     Indication: DEPRESSION
     Route: 065
  6. PRINIVIL [Concomitant]
     Indication: BLOOD CHOLESTEROL INCREASED
     Route: 048
  7. FLOMAX [Concomitant]
     Indication: RENAL IMPAIRMENT
     Route: 065
     Dates: start: 20040101
  8. LOVASTATIN [Concomitant]
     Indication: ANTICOAGULANT THERAPY
     Route: 065
     Dates: start: 20040718
  9. TEMAZEPAM [Concomitant]
     Indication: SLEEP DISORDER
     Route: 065
     Dates: start: 20040701
  10. ARTHROTEC [Concomitant]
     Indication: ARTHRITIS
     Route: 065
     Dates: start: 19950101
  11. PANGESTYME EC [Concomitant]
     Indication: PANCREATITIS
     Route: 065
  12. NEURONTIN [Concomitant]
     Indication: PAIN
     Route: 065
     Dates: start: 20040701

REACTIONS (13)
  - ARRHYTHMIA [None]
  - ATHEROSCLEROSIS [None]
  - CHEST PAIN [None]
  - CORONARY ARTERY DISEASE [None]
  - DIABETES MELLITUS [None]
  - DYSPEPSIA [None]
  - DYSPNOEA [None]
  - HEART RATE IRREGULAR [None]
  - HERNIA [None]
  - MYOCARDIAL INFARCTION [None]
  - OEDEMA PERIPHERAL [None]
  - OVERDOSE [None]
  - STENT PLACEMENT [None]
